FAERS Safety Report 9788002 (Version 1)
Quarter: 2013Q4

REPORT INFORMATION
  Report Type: Spontaneous
  Country: GB (occurrence: GB)
  Receive Date: 20131230
  Receipt Date: 20131230
  Transmission Date: 20140711
  Serious: Yes (Life-Threatening, Hospitalization)
  Sender: FDA-Public Use
  Company Number: GB-GE HEALTHCARE MEDICAL DIAGNOSTICS-VISP-PR-1312S-1000

PATIENT
  Age: 62 Year
  Sex: Female

DRUGS (6)
  1. VISIPAQUE [Suspect]
     Indication: ELECTROCARDIOGRAM ABNORMAL
     Route: 013
     Dates: start: 20131220, end: 20131220
  2. VISIPAQUE [Suspect]
     Indication: DIAGNOSTIC PROCEDURE
  3. LIDOCAINE [Concomitant]
  4. SALINE [Concomitant]
  5. HEPARINISED SALINE [Concomitant]
  6. CHLORHEXIDINE [Concomitant]

REACTIONS (3)
  - Blood pressure decreased [Recovered/Resolved]
  - Anaphylactic reaction [Recovered/Resolved]
  - Vomiting [Recovered/Resolved]
